FAERS Safety Report 5007364-9 (Version None)
Quarter: 2006Q2

REPORT INFORMATION
  Report Type: 
  Country: None (occurrence: None)
  Receive Date: 20060519
  Receipt Date: 20060519
  Transmission Date: 20061013
  Serious: Yes (Other)
  Sender: FDA-Public Use
  Company Number: None

PATIENT
  Sex: Male
  Weight: 112.4921 kg

DRUGS (1)
  1. ROSIGLITAZONE [Suspect]
     Dosage: 8MG QAILY  PO
     Route: 048
     Dates: start: 20060216, end: 20060228

REACTIONS (2)
  - INCREASED APPETITE [None]
  - WEIGHT INCREASED [None]
